FAERS Safety Report 20721613 (Version 7)
Quarter: 2023Q1

REPORT INFORMATION
  Report Type: Spontaneous
  Country: CA (occurrence: CA)
  Receive Date: 20220418
  Receipt Date: 20230302
  Transmission Date: 20230418
  Serious: Yes (Other)
  Sender: FDA-Public Use
  Company Number: CA-PFIZER INC-202101468414

PATIENT
  Age: 31 Year
  Sex: Female
  Weight: 66 kg

DRUGS (18)
  1. RUXIENCE [Suspect]
     Active Substance: RITUXIMAB-PVVR
     Indication: Granulomatosis with polyangiitis
     Dosage: 500 MG, SINGLE (SINGLE DOSE)
     Route: 042
     Dates: start: 20210301, end: 20210301
  2. RUXIENCE [Suspect]
     Active Substance: RITUXIMAB-PVVR
     Dosage: 500 MG X 1 IN DECEMBER 2021
     Route: 042
     Dates: start: 202112
  3. RUXIENCE [Suspect]
     Active Substance: RITUXIMAB-PVVR
     Dosage: 500 MG (500 MG X 1 IN DECEMBER 2021  )
     Route: 042
     Dates: start: 20211213, end: 20211213
  4. RUXIENCE [Suspect]
     Active Substance: RITUXIMAB-PVVR
     Dosage: 1 G, 1X2 WEEK, 2 DOSES
     Route: 042
     Dates: start: 20220815
  5. RUXIENCE [Suspect]
     Active Substance: RITUXIMAB-PVVR
     Dosage: 1 G, 1X2 WEEK, 2 DOSES
     Route: 042
     Dates: start: 20220815
  6. RUXIENCE [Suspect]
     Active Substance: RITUXIMAB-PVVR
     Dosage: 1 G, EVERY 2 WEEK, 2 DOSES
     Route: 042
     Dates: start: 20220815
  7. RUXIENCE [Suspect]
     Active Substance: RITUXIMAB-PVVR
     Dosage: 1 G, EVERY 2 WEEK, 2 DOSES
     Route: 042
     Dates: start: 20220829
  8. RUXIENCE [Suspect]
     Active Substance: RITUXIMAB-PVVR
     Dosage: 1000 MG ON DAY 1 AND DAY 15
     Route: 042
     Dates: start: 20230227
  9. ACETAMINOPHEN [Concomitant]
     Active Substance: ACETAMINOPHEN
     Indication: Premedication
     Dosage: 650 MG
     Dates: start: 20220815, end: 20220815
  10. DIPHENHYDRAMINE [Concomitant]
     Active Substance: DIPHENHYDRAMINE
     Indication: Premedication
     Dosage: 50 MG
     Dates: start: 20220815, end: 20220815
  11. DECADRON [Concomitant]
     Active Substance: DEXAMETHASONE
     Indication: Premedication
     Dosage: 100 MG
     Dates: start: 20220815, end: 20220815
  12. GLUCOSAMINE + CHONDORITIN [Concomitant]
     Dosage: UNK, 3X/DAY (750-600 MG TABLET, 3 TIMES DAILY)
     Route: 048
  13. HUMALOG [Concomitant]
     Active Substance: INSULIN LISPRO
     Dosage: 10 IU, 3X/DAY (10 UNITS AC TID)
  14. MONOPRIL [Concomitant]
     Active Substance: FOSINOPRIL SODIUM
     Dosage: 15 MG, DAILY
     Route: 048
  15. SEPTRA [Concomitant]
     Active Substance: SULFAMETHOXAZOLE\TRIMETHOPRIM
     Indication: Prophylaxis
     Dosage: 1 DF, (UNKNOWN DOSE, FREQUENCY)
  16. SEPTRA DS [Concomitant]
     Active Substance: SULFAMETHOXAZOLE\TRIMETHOPRIM
     Dosage: UNK, 1 TAB EVERY MONDAY, WEDNESDAY, FRIDAY
  17. TOUJEO [Concomitant]
     Active Substance: INSULIN GLARGINE
     Dosage: 18 IU, DAILY (18 UNITS DAILY )
  18. VITAMIN D3 [Concomitant]
     Active Substance: CHOLECALCIFEROL
     Dosage: 1000 IU, DAILY (1,000 UNITS)
     Route: 048

REACTIONS (19)
  - Haematochezia [Not Recovered/Not Resolved]
  - Juvenile idiopathic arthritis [Unknown]
  - Orthopaedic procedure [Not Recovered/Not Resolved]
  - Haemorrhoids [Not Recovered/Not Resolved]
  - Nasal crusting [Not Recovered/Not Resolved]
  - Throat tightness [Not Recovered/Not Resolved]
  - Loss of personal independence in daily activities [Not Recovered/Not Resolved]
  - Arthralgia [Recovering/Resolving]
  - Joint range of motion decreased [Unknown]
  - Anti-cyclic citrullinated peptide antibody positive [Unknown]
  - Condition aggravated [Unknown]
  - Gait disturbance [Unknown]
  - Musculoskeletal stiffness [Not Recovered/Not Resolved]
  - Inflammation [Unknown]
  - Off label use [Unknown]
  - Intentional product use issue [Unknown]
  - Off label use [Unknown]
  - Off label use [Unknown]
  - Product use issue [Unknown]

NARRATIVE: CASE EVENT DATE: 20211001
